FAERS Safety Report 6060795-0 (Version None)
Quarter: 2009Q1

REPORT INFORMATION
  Report Type: 
  Country: None (occurrence: None)
  Receive Date: 20090202
  Receipt Date: 20090126
  Transmission Date: 20090719
  Serious: Yes (Other)
  Sender: FDA-Public Use
  Company Number: PHEH2009US01106

PATIENT
  Sex: Female

DRUGS (1)
  1. EXFORGE [Suspect]
     Dosage: 10/320 MG
     Dates: end: 20081201

REACTIONS (4)
  - ABASIA [None]
  - BACK DISORDER [None]
  - JOINT SWELLING [None]
  - MUSCULAR WEAKNESS [None]
